FAERS Safety Report 9732051 (Version 1)
Quarter: 2013Q4

REPORT INFORMATION
  Report Type: Spontaneous
  Country: US (occurrence: None)
  Receive Date: 20131204
  Receipt Date: 20131204
  Transmission Date: 20140711
  Serious: Yes (Death)
  Sender: FDA-Public Use
  Company Number: None

PATIENT
  Age: 81 Year
  Sex: Female
  Weight: 87 kg

DRUGS (2)
  1. WARFARIN [Suspect]
     Indication: ATRIAL FIBRILLATION
     Dosage: 1 PILL VARIES ORAL
     Route: 048
  2. WARFARIN [Suspect]
     Indication: EMBOLISM VENOUS
     Dosage: 1 PILL VARIES ORAL
     Route: 048

REACTIONS (2)
  - Fall [None]
  - Haemorrhagic stroke [None]
